FAERS Safety Report 5195420-4 (Version None)
Quarter: 2006Q4

REPORT INFORMATION
  Report Type: 
  Country: None (occurrence: None)
  Receive Date: 20061229
  Receipt Date: 20061122
  Transmission Date: 20070319
  Serious: Yes (Other)
  Sender: FDA-Public Use
  Company Number: US-PFIZER INC-2006144763

PATIENT
  Age: 44 Year
  Sex: Female
  Weight: 74.4 kg

DRUGS (3)
  1. DOSTINEX [Suspect]
     Indication: HYPERPITUITARISM
  2. HYDROCORTISONE [Concomitant]
  3. SYNTHROID [Concomitant]

REACTIONS (5)
  - DYSPNOEA [None]
  - HEART RATE INCREASED [None]
  - PALPITATIONS [None]
  - PSYCHOMOTOR HYPERACTIVITY [None]
  - SLEEP DISORDER [None]
